FAERS Safety Report 9440754 (Version 4)
Quarter: 2013Q3

REPORT INFORMATION
  Report Type: Spontaneous
  Country: US (occurrence: US)
  Receive Date: 20130805
  Receipt Date: 20130923
  Transmission Date: 20140515
  Serious: Yes (Hospitalization)
  Sender: FDA-Public Use
  Company Number: US-GILEAD-2013-0080775

PATIENT
  Age: 30 Year
  Sex: Female

DRUGS (2)
  1. LETAIRIS [Suspect]
     Indication: PULMONARY HYPERTENSION
     Dosage: 5 MG, UNK
     Route: 048
     Dates: start: 20120724
  2. LETAIRIS [Suspect]
     Indication: JUVENILE IDIOPATHIC ARTHRITIS

REACTIONS (3)
  - Palpitations [Unknown]
  - Palpitations [Not Recovered/Not Resolved]
  - Dizziness [Unknown]
